FAERS Safety Report 7289317-3 (Version None)
Quarter: 2011Q1

REPORT INFORMATION
  Report Type: 
  Country: None (occurrence: None)
  Receive Date: 20110211
  Receipt Date: 20110209
  Transmission Date: 20110831
  Serious: Yes (Death, Hospitalization, Other)
  Sender: FDA-Public Use
  Company Number: BR-ABBOTT-10P-020-0689914-00

PATIENT
  Sex: Female
  Weight: 52 kg

DRUGS (1)
  1. HUMIRA [Suspect]
     Indication: RHEUMATOID ARTHRITIS
     Dates: start: 20100401

REACTIONS (11)
  - CARDIAC FAILURE [None]
  - URINARY TRACT INFECTION [None]
  - PULMONARY OEDEMA [None]
  - SEPSIS [None]
  - RESPIRATORY ARREST [None]
  - ARTHRALGIA [None]
  - CHEST PAIN [None]
  - CONJUNCTIVITIS [None]
  - ANXIETY [None]
  - ANAEMIA [None]
  - BLOOD DISORDER [None]
